FAERS Safety Report 24810702 (Version 1)
Quarter: 2025Q1

REPORT INFORMATION
  Report Type: Report from Study
  Country: US (occurrence: US)
  Receive Date: 20250106
  Receipt Date: 20250106
  Transmission Date: 20250408
  Serious: Yes (Hospitalization, Other)
  Sender: BAYER HEALTHCARE PHARMACEUTICALS INC.
  Company Number: US-BAYER-2024A126293

PATIENT
  Age: 59 Year
  Sex: Female
  Weight: 83.9 kg

DRUGS (20)
  1. ADEMPAS [Suspect]
     Active Substance: RIOCIGUAT
     Indication: Pulmonary arterial hypertension
     Route: 048
     Dates: start: 20231228
  2. ADEMPAS [Suspect]
     Active Substance: RIOCIGUAT
     Indication: Pulmonary arterial hypertension
     Route: 048
     Dates: start: 20240208
  3. ADEMPAS [Suspect]
     Active Substance: RIOCIGUAT
     Indication: Pulmonary arterial hypertension
     Dosage: 2.5 MG, TID
     Route: 048
  4. VITAMIN C [Concomitant]
     Active Substance: ASCORBIC ACID
  5. TYLENOL EXTRA STRENGTH [Concomitant]
     Active Substance: ACETAMINOPHEN
  6. ALDACTONE [Concomitant]
     Active Substance: SPIRONOLACTONE
  7. JARDIANCE [Concomitant]
     Active Substance: EMPAGLIFLOZIN
  8. LASIX [Concomitant]
     Active Substance: FUROSEMIDE
  9. VENLAFAXINE HCL [Concomitant]
     Active Substance: VENLAFAXINE HYDROCHLORIDE
  10. B COMPLEX WITH B-12 [Concomitant]
  11. ELIQUIS [Concomitant]
     Active Substance: APIXABAN
  12. PROCHLORPERAZINE MALEATE [Concomitant]
     Active Substance: PROCHLORPERAZINE MALEATE
  13. IRON [Concomitant]
     Active Substance: IRON
  14. ONDANSETRON HYDROCHLORIDE [Concomitant]
     Active Substance: ONDANSETRON HYDROCHLORIDE
  15. VITAMIN D3 [Concomitant]
     Active Substance: CHOLECALCIFEROL
  16. METOPROLOL TARTRATE [Concomitant]
     Active Substance: METOPROLOL TARTRATE
  17. TYVASO DPI [Concomitant]
     Active Substance: TREPROSTINIL
  18. LIDOCAINE AND PRILOCAINE [Concomitant]
     Active Substance: LIDOCAINE\PRILOCAINE
  19. ANASTROZOLE [Concomitant]
     Active Substance: ANASTROZOLE
  20. CALCIUM [Concomitant]
     Active Substance: CALCIUM

REACTIONS (11)
  - Immune-mediated adverse reaction [None]
  - Hernia obstructive [None]
  - Oxygen saturation decreased [None]
  - Cough [None]
  - Fluid retention [None]
  - Mastectomy [None]
  - Lower respiratory tract congestion [None]
  - Dyspnoea [Recovering/Resolving]
  - Weight decreased [None]
  - Influenza [None]
  - Nasopharyngitis [None]

NARRATIVE: CASE EVENT DATE: 20240301
